FAERS Safety Report 19770180 (Version 3)
Quarter: 2022Q1

REPORT INFORMATION
  Report Type: Spontaneous
  Country: US (occurrence: US)
  Receive Date: 20210831
  Receipt Date: 20220228
  Transmission Date: 20220423
  Serious: Yes (Hospitalization, Other)
  Sender: FDA-Public Use
  Company Number: US-GW PHARMA-202108USGW04189

PATIENT

DRUGS (4)
  1. EPIDIOLEX [Suspect]
     Active Substance: CANNABIDIOL
     Indication: Lennox-Gastaut syndrome
     Dosage: 4.90 MG/KG/DAY, 100 MILLIGRAM, BID
     Route: 048
     Dates: start: 201812, end: 2019
  2. EPIDIOLEX [Suspect]
     Active Substance: CANNABIDIOL
     Dosage: 6.13 MG/KG/DAY, 125 MILLIGRAM BID,( TITRATED UPTO 0.25 ML EVERY 2 WEEKS)
     Route: 048
     Dates: start: 2019, end: 201903
  3. VALPROIC ACID [Concomitant]
     Active Substance: VALPROIC ACID
     Indication: Product used for unknown indication
     Dosage: 30 MILLILITER, QD, (5 ML AM, 10 ML NOON, 15 ML PM); SINCE EARLY CHILDHOOD
     Route: 065
  4. BANZEL [Concomitant]
     Active Substance: RUFINAMIDE
     Indication: Generalised tonic-clonic seizure
     Dosage: 25 MILLILITER, QD (10 ML AM, 15 ML PM)
     Route: 065
     Dates: start: 201803

REACTIONS (5)
  - Seizure [Recovered/Resolved]
  - Generalised tonic-clonic seizure [Recovered/Resolved]
  - Insomnia [Recovered/Resolved]
  - Irritability [Recovered/Resolved]
  - Drug ineffective [Unknown]

NARRATIVE: CASE EVENT DATE: 20190101
